FAERS Safety Report 4847416-7 (Version None)
Quarter: 2005Q4

REPORT INFORMATION
  Report Type: 
  Country: None (occurrence: None)
  Receive Date: 20051205
  Receipt Date: 20051130
  Transmission Date: 20060501
  Serious: Yes (Hospitalization)
  Sender: FDA-Public Use
  Company Number: STA-AE-05-MTX-025

PATIENT
  Age: 60 Year
  Sex: Female

DRUGS (2)
  1. METHOTREXATE [Suspect]
     Indication: RHEUMATOID ARTHRITIS
     Dosage: 25 MG - 1XW - ORAL
     Route: 048
     Dates: start: 19900101
  2. ABATACEPT [Suspect]
     Indication: RHEUMATOID ARTHRITIS
     Dosage: IV
     Route: 042
     Dates: start: 20020320

REACTIONS (9)
  - ATELECTASIS [None]
  - DIAPHRAGMATIC PARALYSIS [None]
  - DIVERTICULITIS [None]
  - HAEMANGIOMA OF LIVER [None]
  - INFECTION [None]
  - LOBAR PNEUMONIA [None]
  - PLEURAL EFFUSION [None]
  - POST PROCEDURAL COMPLICATION [None]
  - THERAPY NON-RESPONDER [None]
